FAERS Safety Report 17492111 (Version 2)
Quarter: 2020Q1

REPORT INFORMATION
  Report Type: Spontaneous
  Country: US (occurrence: US)
  Receive Date: 20200303
  Receipt Date: 20200307
  Transmission Date: 20200409
  Serious: No
  Sender: FDA-Public Use
  Company Number: US-TEVA-2020-US-1192983

PATIENT

DRUGS (1)
  1. BUPRENORPHINE TEVA [Suspect]
     Active Substance: BUPRENORPHINE
     Indication: PAIN
     Dosage: 10 MCG/HOUR
     Route: 062

REACTIONS (5)
  - Rash [Unknown]
  - Product substitution issue [Unknown]
  - Drug ineffective [Unknown]
  - Product packaging difficult to open [Unknown]
  - Product size issue [Unknown]
